FAERS Safety Report 5904550-8 (Version None)
Quarter: 2008Q4

REPORT INFORMATION
  Report Type: 
  Country: None (occurrence: None)
  Receive Date: 20081001
  Receipt Date: 20080924
  Transmission Date: 20090506
  Serious: Yes (Other)
  Sender: FDA-Public Use
  Company Number: DK-NOVOPROD-278168

PATIENT
  Age: 41 Year
  Sex: Female
  Weight: 60 kg

DRUGS (5)
  1. LEVEMIR [Suspect]
     Indication: TYPE 1 DIABETES MELLITUS
     Dosage: 10+6 QD
     Dates: start: 20080313, end: 20080509
  2. INSULATARD [Suspect]
     Indication: TYPE 1 DIABETES MELLITUS
     Dosage: 10+6 QD
     Dates: start: 20080509, end: 20080520
  3. NOVORAPID [Suspect]
     Indication: TYPE 1 DIABETES MELLITUS
     Dosage: 7+5+3 QD
  4. BECONASE [Concomitant]
  5. BENADRYL [Concomitant]
     Dosage: 1 UNK, UNK

REACTIONS (3)
  - ABORTION SPONTANEOUS [None]
  - BLOOD GLUCOSE INCREASED [None]
  - KETONURIA [None]
